FAERS Safety Report 22622811 (Version 1)
Quarter: 2023Q2

REPORT INFORMATION
  Report Type: Spontaneous
  Country: US (occurrence: US)
  Receive Date: 20230621
  Receipt Date: 20230621
  Transmission Date: 20230721
  Serious: No
  Sender: FDA-Public Use
  Company Number: US-Accord-296930

PATIENT
  Sex: Male

DRUGS (1)
  1. CAPECITABINE [Suspect]
     Active Substance: CAPECITABINE
     Indication: Oesophageal carcinoma
     Dosage: 7/150MG TABLETS/1050 MG TWICE DAILY /FOR 2 WEEKS ON AND ONE WEEK OFF

REACTIONS (3)
  - Product use complaint [Unknown]
  - Product size issue [Unknown]
  - Off label use [Unknown]
